FAERS Safety Report 12744660 (Version 2)
Quarter: 2016Q4

REPORT INFORMATION
  Report Type: Spontaneous
  Country: US (occurrence: US)
  Receive Date: 20160915
  Receipt Date: 20161019
  Transmission Date: 20170207
  Serious: Yes (Hospitalization)
  Sender: FDA-Public Use
  Company Number: US-ROCHE-1829771

PATIENT
  Age: 17 Year
  Sex: Female
  Weight: 81.1 kg

DRUGS (2)
  1. RITUXAN [Suspect]
     Active Substance: RITUXIMAB
     Indication: NEUROMYELITIS OPTICA SPECTRUM DISORDER
     Dosage: ONCE
     Route: 042
     Dates: start: 20160112, end: 20160112
  2. RITUXAN [Suspect]
     Active Substance: RITUXIMAB
     Dosage: ONCE
     Route: 042
     Dates: start: 20160126, end: 20160126

REACTIONS (4)
  - Pneumonia staphylococcal [Not Recovered/Not Resolved]
  - Lung neoplasm [Unknown]
  - Cough [Unknown]
  - Computerised tomogram thorax abnormal [Not Recovered/Not Resolved]

NARRATIVE: CASE EVENT DATE: 201606
